FAERS Safety Report 9916863 (Version 3)
Quarter: 2014Q2

REPORT INFORMATION
  Report Type: Spontaneous
  Country: US (occurrence: US)
  Receive Date: 20140221
  Receipt Date: 20140618
  Transmission Date: 20141212
  Serious: No
  Sender: FDA-Public Use
  Company Number: US-PFIZER INC-2013156038

PATIENT
  Age: 60 Year
  Sex: Female
  Weight: 83.9 kg

DRUGS (8)
  1. LYRICA [Suspect]
     Indication: DIABETIC NEUROPATHY
     Dosage: 50 MG, 3X/DAY
     Dates: start: 201303
  2. LYRICA [Suspect]
     Dosage: 100 MG, 3X/DAY
  3. LYRICA [Suspect]
     Dosage: 100 MG, 3X/DAY
     Dates: start: 201303
  4. METFORMIN [Concomitant]
     Indication: TYPE 2 DIABETES MELLITUS
     Dosage: 500 MG, 2X/DAY
  5. ATENOLOL [Concomitant]
     Dosage: 25 MG, 1X/DAY
  6. AMITRIPTYLINE [Concomitant]
     Dosage: 25 MG, 1X/DAY
  7. VENTOLIN [Concomitant]
  8. HYDROCODONE [Concomitant]

REACTIONS (5)
  - Weight increased [Unknown]
  - Therapeutic response changed [Unknown]
  - Hair growth abnormal [Unknown]
  - Therapeutic response changed [Unknown]
  - Pre-existing condition improved [Unknown]
